FAERS Safety Report 24177482 (Version 3)
Quarter: 2024Q3

REPORT INFORMATION
  Report Type: Spontaneous
  Country: US (occurrence: US)
  Receive Date: 20240806
  Receipt Date: 20240820
  Transmission Date: 20241016
  Serious: Yes (Hospitalization, Other)
  Sender: CATALYST PHARMA
  Company Number: US-CATALYST PHARMACEUTICALS, INC-US-CATA-24-00805

PATIENT
  Age: 41 Year
  Sex: Female

DRUGS (3)
  1. FYCOMPA [Suspect]
     Active Substance: PERAMPANEL
     Indication: Epilepsy
     Dosage: 2 MG
     Route: 048
     Dates: start: 202106
  2. FYCOMPA [Suspect]
     Active Substance: PERAMPANEL
     Dosage: 10 MG ONCE A DAY
     Route: 048
  3. FYCOMPA [Suspect]
     Active Substance: PERAMPANEL
     Dosage: 20 ML BY TUBE EVERY NIGHT AT BEDTIME
     Route: 065

REACTIONS (8)
  - Cardiac arrest [Unknown]
  - Hospitalisation [Not Recovered/Not Resolved]
  - Impaired gastric emptying [Not Recovered/Not Resolved]
  - Epilepsy [Not Recovered/Not Resolved]
  - Feeding tube user [Unknown]
  - Seizure [Unknown]
  - Malnutrition [Unknown]
  - Drug withdrawal syndrome [Unknown]

NARRATIVE: CASE EVENT DATE: 20240701
